FAERS Safety Report 4714010-8 (Version None)
Quarter: 2005Q3

REPORT INFORMATION
  Report Type: 
  Country: None (occurrence: None)
  Receive Date: 20050714
  Receipt Date: 20050711
  Transmission Date: 20060218
  Serious: Yes (Hospitalization)
  Sender: FDA-Public Use
  Company Number: 200512318FR

PATIENT
  Age: 70 Year
  Sex: Male

DRUGS (6)
  1. BIRODOGYL [Suspect]
     Indication: PERIODONTAL INFECTION
     Route: 048
     Dates: start: 20050218, end: 20050220
  2. ALODONT [Suspect]
     Indication: PERIODONTAL INFECTION
     Route: 002
     Dates: start: 20050218, end: 20050220
  3. IBUPROFEN [Suspect]
     Indication: PERIODONTAL INFECTION
     Route: 048
     Dates: start: 20050218, end: 20050220
  4. ZANIDIP [Concomitant]
     Indication: HYPERTENSION
  5. ODRIK [Concomitant]
     Indication: HYPERTENSION
  6. ZYRTEC [Concomitant]
     Indication: HYPERSENSITIVITY

REACTIONS (3)
  - ASTHENIA [None]
  - DIARRHOEA [None]
  - NAUSEA [None]
